FAERS Safety Report 13272085 (Version 1)
Quarter: 2017Q1

REPORT INFORMATION
  Report Type: Spontaneous
  Country: PT (occurrence: PT)
  Receive Date: 20170227
  Receipt Date: 20170227
  Transmission Date: 20170428
  Serious: Yes (Other)
  Sender: FDA-Public Use
  Company Number: PT-AUROBINDO-AUR-APL-2017-30066

PATIENT
  Age: 66 Year
  Sex: Male

DRUGS (4)
  1. CLARITHROMYCIN 500MG [Suspect]
     Active Substance: CLARITHROMYCIN
     Indication: LYMPHOMA
     Dosage: 500 MG, TWO TIMES A DAY
     Route: 048
  2. CLARITHROMYCIN 500MG [Suspect]
     Active Substance: CLARITHROMYCIN
     Indication: MYCOBACTERIUM CHELONAE INFECTION
     Dosage: 500 MG, TWO TIMES A DAY
     Route: 048
  3. TOBRAMYCIN. [Suspect]
     Active Substance: TOBRAMYCIN
     Indication: LYMPHOMA
     Dosage: 150 MG, ONCE A DAY
     Route: 030
  4. TOBRAMYCIN. [Suspect]
     Active Substance: TOBRAMYCIN
     Indication: MYCOBACTERIUM CHELONAE INFECTION
     Dosage: 150 MG, ONCE A DAY
     Route: 030

REACTIONS (2)
  - Hepatotoxicity [Unknown]
  - Nephropathy toxic [Unknown]
